FAERS Safety Report 15509651 (Version 1)
Quarter: 2018Q4

REPORT INFORMATION
  Report Type: Spontaneous
  Country: US (occurrence: US)
  Receive Date: 20181010
  Receipt Date: 20181010
  Transmission Date: 20190205
  Serious: No
  Sender: FDA-Public Use
  Company Number: None

PATIENT
  Age: 25 Year
  Sex: Female

DRUGS (1)
  1. HARVONI [Suspect]
     Active Substance: LEDIPASVIR\SOFOSBUVIR
     Indication: CHRONIC HEPATITIS C
     Dosage: ?          OTHER DOSE:90/400 MG;?
     Route: 048
     Dates: start: 20180824

REACTIONS (2)
  - Migraine [None]
  - Swelling [None]

NARRATIVE: CASE EVENT DATE: 20180920
